FAERS Safety Report 13856970 (Version 1)
Quarter: 2017Q3

REPORT INFORMATION
  Report Type: Spontaneous
  Country: US (occurrence: US)
  Receive Date: 20170810
  Receipt Date: 20170810
  Transmission Date: 20171127
  Serious: No
  Sender: FDA-Public Use
  Company Number: US-ROCHE-1062532

PATIENT
  Age: 19 Year
  Sex: Male

DRUGS (2)
  1. TEMAZEPAM. [Concomitant]
     Active Substance: TEMAZEPAM
     Route: 065
  2. TAMIFLU [Suspect]
     Active Substance: OSELTAMIVIR PHOSPHATE
     Indication: INFLUENZA
     Dosage: FOR 5 DAYS.
     Route: 048

REACTIONS (7)
  - Nightmare [Not Recovered/Not Resolved]
  - Decreased appetite [Not Recovered/Not Resolved]
  - Confusional state [Not Recovered/Not Resolved]
  - Dehydration [Not Recovered/Not Resolved]
  - Vision blurred [Not Recovered/Not Resolved]
  - Hallucination [Not Recovered/Not Resolved]
  - Nervousness [Not Recovered/Not Resolved]
